FAERS Safety Report 8658347 (Version 4)
Quarter: 2015Q4

REPORT INFORMATION
  Report Type: Report from Study
  Country: CA (occurrence: CA)
  Receive Date: 20120710
  Receipt Date: 20151216
  Transmission Date: 20160305
  Serious: Yes (Other)
  Sender: FDA-Public Use
  Company Number: CA-ROCHE-1084555

PATIENT
  Age: 55 Year
  Sex: Female
  Weight: 56.75 kg

DRUGS (14)
  1. TOLOXIN (CANADA) [Concomitant]
  2. HYDROXYQUINOLINE [Concomitant]
  3. RITUXAN [Suspect]
     Active Substance: RITUXIMAB
     Indication: RHEUMATOID ARTHRITIS
     Route: 042
     Dates: start: 20100622
  4. ACETAMINOPHEN. [Concomitant]
     Active Substance: ACETAMINOPHEN
     Indication: PREMEDICATION
     Route: 048
     Dates: start: 20100622
  5. MAVIK [Concomitant]
     Active Substance: TRANDOLAPRIL
  6. ALTACE [Concomitant]
     Active Substance: RAMIPRIL
  7. ALDACTONE [Concomitant]
     Active Substance: SPIRONOLACTONE
  8. FAMCICLOVIR. [Concomitant]
     Active Substance: FAMCICLOVIR
     Dosage: AS REQUIRED
     Route: 065
  9. CALCITE [Concomitant]
     Active Substance: CALCIUM CARBONATE
  10. DIPHENHYDRAMINE HCL [Concomitant]
     Active Substance: DIPHENHYDRAMINE HYDROCHLORIDE
     Indication: PREMEDICATION
     Route: 048
     Dates: start: 20100622
  11. METHYLPREDNISOLONE. [Concomitant]
     Active Substance: METHYLPREDNISOLONE
     Indication: PREMEDICATION
     Route: 042
     Dates: start: 20100622
  12. BISOPROLOL [Concomitant]
     Active Substance: BISOPROLOL
  13. CARVEDILOL. [Concomitant]
     Active Substance: CARVEDILOL
  14. ORENCIA [Suspect]
     Active Substance: ABATACEPT
     Indication: RHEUMATOID ARTHRITIS
     Route: 042

REACTIONS (5)
  - Lymphoma [Not Recovered/Not Resolved]
  - Erythema [Unknown]
  - Malignant melanoma [Unknown]
  - Infusion related reaction [Unknown]
  - Heart rate decreased [Unknown]

NARRATIVE: CASE EVENT DATE: 20111208
